FAERS Safety Report 8960517 (Version 1)
Quarter: 2012Q4

REPORT INFORMATION
  Report Type: Spontaneous
  Country: US (occurrence: None)
  Receive Date: 20121207
  Receipt Date: 20121207
  Transmission Date: 20130627
  Serious: Yes (Other)
  Sender: FDA-Public Use
  Company Number: None

PATIENT
  Age: 60 Year
  Sex: Female
  Weight: 86.18 kg

DRUGS (2)
  1. PROLIA [Suspect]
     Dosage: 2 x per year sq
     Route: 058
     Dates: start: 20120722, end: 20120722
  2. PROLIA [Suspect]
     Dosage: 2 x per year sq
     Route: 058
     Dates: start: 20120722, end: 20120722

REACTIONS (3)
  - Musculoskeletal pain [None]
  - Humerus fracture [None]
  - Injected limb mobility decreased [None]
